FAERS Safety Report 14659854 (Version 1)
Quarter: 2018Q1

REPORT INFORMATION
  Report Type: Report from Study
  Country: BE (occurrence: BE)
  Receive Date: 20180320
  Receipt Date: 20180320
  Transmission Date: 20180509
  Serious: Yes (Other)
  Sender: FDA-Public Use
  Company Number: BE-PFIZER INC-2018108757

PATIENT
  Age: 42 Year
  Sex: Female

DRUGS (5)
  1. RITUXIMAB. [Suspect]
     Active Substance: RITUXIMAB
     Indication: MYOSITIS
     Dosage: 2 G, UNK
     Route: 065
     Dates: start: 20150701
  2. METHOTREXATE. [Concomitant]
     Active Substance: METHOTREXATE
     Indication: MYOSITIS
     Dosage: 15 MG WEEKLEY - MAXIMAL TOLERATED DOSE
     Route: 065
  3. METHYLPREDNISOLONE. [Suspect]
     Active Substance: METHYLPREDNISOLONE
     Indication: MYOSITIS
     Dosage: 24 MG, 1X/DAY
     Route: 065
     Dates: start: 20140801
  4. METHYLPREDNISOLONE. [Suspect]
     Active Substance: METHYLPREDNISOLONE
     Dosage: UNK
     Route: 065
     Dates: start: 20150301
  5. CELLCEPT [Suspect]
     Active Substance: MYCOPHENOLATE MOFETIL\MYCOPHENOLATE MOFETIL HYDROCHLORIDE
     Indication: MYOSITIS
     Dosage: 1 G - MAXIMAL TOLERATED DOSE
     Route: 065
     Dates: start: 20140801

REACTIONS (5)
  - Drug ineffective [Unknown]
  - Blood creatine phosphokinase increased [Unknown]
  - Off label use [Unknown]
  - Disease recurrence [Not Recovered/Not Resolved]
  - Myalgia [Not Recovered/Not Resolved]

NARRATIVE: CASE EVENT DATE: 20170801
